FAERS Safety Report 6502006-5 (Version None)
Quarter: 2009Q4

REPORT INFORMATION
  Report Type: 
  Country: None (occurrence: None)
  Receive Date: 20091216
  Receipt Date: 20091207
  Transmission Date: 20100525
  Serious: Yes (Hospitalization)
  Sender: FDA-Public Use
  Company Number: US-AMGEN-QUU376473

PATIENT
  Sex: Female
  Weight: 124.4 kg

DRUGS (13)
  1. ENBREL [Suspect]
     Indication: RHEUMATOID ARTHRITIS
     Route: 058
     Dates: start: 20080601
  2. METHOTREXATE [Concomitant]
     Route: 048
     Dates: start: 20071220
  3. METHOTREXATE [Concomitant]
     Dates: start: 20071220
  4. PREDNISONE [Concomitant]
     Dates: start: 20070921
  5. LISINOPRIL [Concomitant]
  6. ALBUTEROL SULATE [Concomitant]
  7. ACETAZOLAMIDE [Concomitant]
  8. AMLODIPINE [Concomitant]
  9. BUPROPION HCL [Concomitant]
  10. ADVAIR DISKUS 100/50 [Concomitant]
  11. DOXAZOSIN MESYLATE [Concomitant]
  12. LORAZEPAM [Concomitant]
  13. FUROSEMIDE [Concomitant]

REACTIONS (2)
  - OSTEOARTHRITIS [None]
  - RHEUMATOID ARTHRITIS [None]
